FAERS Safety Report 20820407 (Version 2)
Quarter: 2022Q2

REPORT INFORMATION
  Report Type: Report from Study
  Country: CA (occurrence: CA)
  Receive Date: 20220512
  Receipt Date: 20220513
  Transmission Date: 20220721
  Serious: Yes (Death)
  Sender: FDA-Public Use
  Company Number: CA-NOVARTISPH-NVSC2022CA108025

PATIENT
  Age: 25 Year
  Sex: Male
  Weight: 89.5 kg

DRUGS (1)
  1. TRAMETINIB [Suspect]
     Active Substance: TRAMETINIB
     Indication: Glioneuronal tumour
     Dosage: 2 MG, QD
     Route: 048
     Dates: start: 20211022, end: 20220418

REACTIONS (1)
  - Pneumonia pseudomonal [Fatal]

NARRATIVE: CASE EVENT DATE: 20220415
